FAERS Safety Report 4751669-3 (Version None)
Quarter: 2005Q3

REPORT INFORMATION
  Report Type: 
  Country: None (occurrence: None)
  Receive Date: 20050822
  Receipt Date: 20050817
  Transmission Date: 20060218
  Serious: Yes (Other)
  Sender: FDA-Public Use
  Company Number: 200510318BCA

PATIENT

DRUGS (2)
  1. AVELOX [Suspect]
  2. VINCRISTINE [Suspect]

REACTIONS (3)
  - HYPOAESTHESIA [None]
  - NEUROTOXICITY [None]
  - PARAESTHESIA [None]
